FAERS Safety Report 20581702 (Version 1)
Quarter: 2022Q1

REPORT INFORMATION
  Report Type: Spontaneous
  Country: DK (occurrence: DK)
  Receive Date: 20220311
  Receipt Date: 20220311
  Transmission Date: 20220423
  Serious: Yes (Disabling)
  Sender: FDA-Public Use
  Company Number: None

PATIENT
  Age: 65 Year
  Sex: Male

DRUGS (3)
  1. METHOTREXATE [Suspect]
     Active Substance: METHOTREXATE
     Indication: Eczema
     Dosage: STRENGTH: 2.5MG
     Route: 048
     Dates: start: 20180807
  2. VOTRIENT [Suspect]
     Active Substance: PAZOPANIB HYDROCHLORIDE
     Indication: Renal cancer
     Dosage: DOSAGE: FROM 27-DEC-2020 400MG DAILY. FROM 19-MAY-2021 400MG EVERY 2ND DAY,STRENGTH: 400MG
     Route: 048
     Dates: start: 20201227
  3. INLYTA [Suspect]
     Active Substance: AXITINIB
     Indication: Renal cancer
     Dosage: STRENGTH: 5MG; UNIT DOSE: 10MG
     Route: 048
     Dates: start: 20210914

REACTIONS (1)
  - Osteonecrosis of jaw [Recovered/Resolved]

NARRATIVE: CASE EVENT DATE: 20211022
